FAERS Safety Report 17826735 (Version 1)
Quarter: 2020Q2

REPORT INFORMATION
  Report Type: Spontaneous
  Country: US (occurrence: US)
  Receive Date: 20200527
  Receipt Date: 20200527
  Transmission Date: 20200714
  Serious: No
  Sender: FDA-Public Use
  Company Number: US-ELI_LILLY_AND_COMPANY-US202005008127

PATIENT
  Sex: Male

DRUGS (6)
  1. JANUVIA [SITAGLIPTIN] [Concomitant]
     Indication: PRODUCT USED FOR UNKNOWN INDICATION
     Dosage: UNK UNK, DAILY AT NIGHT
  2. HUMALOG [Suspect]
     Active Substance: INSULIN LISPRO
     Indication: TYPE 2 DIABETES MELLITUS
     Dosage: 5-6 U, TID WITH MEALS
     Route: 065
     Dates: start: 2018
  3. HUMALOG [Suspect]
     Active Substance: INSULIN LISPRO
     Indication: TYPE 2 DIABETES MELLITUS
     Dosage: 5-6 U, TID WITH MEALS
     Route: 065
     Dates: start: 2018
  4. HUMALOG [Suspect]
     Active Substance: INSULIN LISPRO
     Dosage: 2-4 U, TID
     Route: 065
     Dates: start: 2018
  5. HUMALOG [Suspect]
     Active Substance: INSULIN LISPRO
     Dosage: 2-4 U, TID
     Route: 065
     Dates: start: 2018
  6. TOUJEO [Concomitant]
     Active Substance: INSULIN GLARGINE
     Indication: PRODUCT USED FOR UNKNOWN INDICATION
     Dosage: 16 U, EACH MORNING

REACTIONS (4)
  - Blood glucose decreased [Recovered/Resolved]
  - Muscular weakness [Recovered/Resolved]
  - Blood glucose increased [Not Recovered/Not Resolved]
  - Speech disorder [Recovered/Resolved]
